FAERS Safety Report 5972283-8 (Version None)
Quarter: 2008Q4

REPORT INFORMATION
  Report Type: 
  Country: None (occurrence: None)
  Receive Date: 20081201
  Receipt Date: 20080324
  Transmission Date: 20090506
  Serious: No
  Sender: FDA-Public Use
  Company Number: US-TEVA-169311USA

PATIENT
  Sex: Female
  Weight: 49.94 kg

DRUGS (6)
  1. SALBUTAMOL SULFATE INHALATION, 0.09 MG [Suspect]
     Indication: ASTHMA
     Route: 055
     Dates: start: 20080317, end: 20080323
  2. ALBUTEROL SULFATE [Concomitant]
     Dosage: RIP TAB PILL
  3. THEOPHYLLINE [Concomitant]
  4. CITALOPRAM HYDROBROMIDE [Concomitant]
  5. VICODIN [Concomitant]
  6. AMITRIPTYLINE HCL [Concomitant]

REACTIONS (2)
  - INCREASED UPPER AIRWAY SECRETION [None]
  - THROAT IRRITATION [None]
